FAERS Safety Report 23523377 (Version 3)
Quarter: 2024Q1

REPORT INFORMATION
  Report Type: Spontaneous
  Country: HR (occurrence: HR)
  Receive Date: 20240214
  Receipt Date: 20240307
  Transmission Date: 20240410
  Serious: Yes (Congenital Anomaly, Other)
  Sender: FDA-Public Use
  Company Number: HR-002147023-NVSC2024HR030382

PATIENT
  Sex: Female

DRUGS (10)
  1. TASIGNA [Suspect]
     Active Substance: NILOTINIB
     Indication: Chronic myeloid leukaemia
     Dosage: 800 MG
     Route: 048
     Dates: start: 201211, end: 2019
  2. DASATINIB [Suspect]
     Active Substance: DASATINIB
     Indication: Product used for unknown indication
     Dosage: UNK
     Route: 065
  3. FUROSEMIDE [Concomitant]
     Active Substance: FUROSEMIDE
     Indication: Product used for unknown indication
     Dosage: 500 MG (1/2 + 1/4 TBL)
     Route: 065
  4. KALINOR [Concomitant]
     Indication: Product used for unknown indication
     Dosage: 1 DOSAGE FORM, QOD
     Route: 065
  5. AMLOPIN [Concomitant]
     Indication: Product used for unknown indication
     Dosage: 5 MG
     Route: 065
  6. RAMIPRIL [Concomitant]
     Active Substance: RAMIPRIL
     Indication: Product used for unknown indication
     Dosage: 5 MG
     Route: 065
  7. ELIQUIS [Concomitant]
     Active Substance: APIXABAN
     Indication: Product used for unknown indication
     Dosage: 10 MG (2X5 MG)
     Route: 065
  8. PANCRELIPASE [Concomitant]
     Active Substance: PANCRELIPASE
     Indication: Product used for unknown indication
     Dosage: UNK
     Route: 065
  9. JARDIANCE [Concomitant]
     Active Substance: EMPAGLIFLOZIN
     Indication: Product used for unknown indication
     Dosage: UNK
     Route: 065
  10. SERETIDE [Concomitant]
     Active Substance: FLUTICASONE PROPIONATE\SALMETEROL XINAFOATE
     Indication: Product used for unknown indication
     Dosage: UNK
     Route: 065

REACTIONS (6)
  - Congenital coronary artery malformation [Recovering/Resolving]
  - Pulmonary hypertension [Recovering/Resolving]
  - Mitral valve incompetence [Recovering/Resolving]
  - Intermittent claudication [Recovering/Resolving]
  - Pleural effusion [Unknown]
  - Haematoma [Unknown]

NARRATIVE: CASE EVENT DATE: 20190701
